FAERS Safety Report 9059493 (Version 1)
Quarter: 2013Q1

REPORT INFORMATION
  Report Type: Spontaneous
  Country: RS (occurrence: RS)
  Receive Date: 20130211
  Receipt Date: 20130211
  Transmission Date: 20140127
  Serious: Yes (Congenital Anomaly, Other)
  Sender: FDA-Public Use
  Company Number: RS-TEVA-385057ISR

PATIENT
  Sex: Female

DRUGS (1)
  1. ESCAPELLE [Suspect]
     Indication: POST COITAL CONTRACEPTION

REACTIONS (4)
  - Drug ineffective [Recovered/Resolved]
  - Congenital anomaly [Recovered/Resolved]
  - Abortion [Unknown]
  - Exposure during pregnancy [Recovered/Resolved]
